FAERS Safety Report 24268128 (Version 1)
Quarter: 2024Q3

REPORT INFORMATION
  Report Type: Spontaneous
  Country: US (occurrence: None)
  Receive Date: 20240829
  Receipt Date: 20240829
  Transmission Date: 20241016
  Serious: Yes (Other)
  Sender: Public
  Company Number: None

PATIENT
  Age: 75 Year
  Sex: Female
  Weight: 65.25 kg

DRUGS (13)
  1. LATANOPROST [Suspect]
     Active Substance: LATANOPROST
     Indication: Intraocular pressure test
     Dosage: OTHER QUANTITY : 1 DROP(S);?FREQUENCY : AT BEDTIME;?
     Route: 047
  2. LATANAPROST; [Concomitant]
  3. TIMOLOL [Concomitant]
     Active Substance: TIMOLOL
  4. VITAMINS [Concomitant]
     Active Substance: VITAMINS
  5. COQ12 [Concomitant]
  6. GINGO [Concomitant]
  7. PRASTERONE [Concomitant]
     Active Substance: PRASTERONE
  8. GLUCOSAMINE/CHONODROITON/MSM [Concomitant]
  9. VITAMIN D3 [Concomitant]
     Active Substance: CHOLECALCIFEROL
  10. VITAMIN B12 [Concomitant]
     Active Substance: CYANOCOBALAMIN
  11. CALCIUM/MAG/ZINC [Concomitant]
  12. THERACURCUMIN [Concomitant]
  13. ORGANIC MUSHROOM IMMUNE SUPPORT [Concomitant]

REACTIONS (9)
  - Eye pain [None]
  - Eye irritation [None]
  - Eye injury [None]
  - Vision blurred [None]
  - Drug ineffective [None]
  - Feeling abnormal [None]
  - Corneal abrasion [None]
  - Foreign body sensation in eyes [None]
  - Weight increased [None]

NARRATIVE: CASE EVENT DATE: 20240722
